FAERS Safety Report 7607639 (Version 4)
Quarter: 2013Q4

REPORT INFORMATION
  Report Type: Spontaneous
  Country: US (occurrence: US)
  Receive Date: 20100927
  Receipt Date: 20131206
  Transmission Date: 20140711
  Serious: Yes (Hospitalization, Other)
  Sender: FDA-Public Use
  Company Number: US-BAYER-201034590NA

PATIENT
  Age: 34 Year
  Sex: Female
  Weight: 93 kg

DRUGS (8)
  1. YASMIN [Suspect]
     Indication: PREMENSTRUAL SYNDROME
     Dosage: UNK
     Dates: start: 20031001, end: 200603
  2. YASMIN [Suspect]
     Indication: PREMENSTRUAL DYSPHORIC DISORDER
  3. ZANTAC [Concomitant]
  4. PAXIL [Concomitant]
     Indication: DEPRESSION
  5. ORTHO TRI-CYCLEN [Concomitant]
  6. RANITIDINE [Concomitant]
     Indication: ABDOMINAL PAIN UPPER
  7. KETEK [Concomitant]
     Indication: INFECTION
     Dosage: UNK
     Dates: start: 20060328
  8. AMOXICILLIN [Concomitant]

REACTIONS (10)
  - Cholelithiasis [None]
  - Cholecystitis chronic [None]
  - Gallbladder injury [None]
  - Vitamin B12 decreased [None]
  - Abdominal discomfort [None]
  - Depression [None]
  - Premenstrual syndrome [None]
  - Premenstrual dysphoric disorder [None]
  - Diarrhoea [None]
  - Fatigue [None]
